FAERS Safety Report 6927403-5 (Version None)
Quarter: 2010Q3

REPORT INFORMATION
  Report Type: 
  Country: None (occurrence: None)
  Receive Date: 20100817
  Receipt Date: 20100813
  Transmission Date: 20110219
  Serious: Yes (Other)
  Sender: FDA-Public Use
  Company Number: GB-TEVA-244603ISR

PATIENT
  Age: 51 Year
  Sex: Female
  Weight: 75 kg

DRUGS (1)
  1. PACLITAXEL [Suspect]
     Indication: BREAST CANCER RECURRENT
     Route: 042
     Dates: start: 20100609, end: 20100728

REACTIONS (3)
  - FLUSHING [None]
  - HYPERTENSION [None]
  - LOSS OF CONSCIOUSNESS [None]
